FAERS Safety Report 15650159 (Version 1)
Quarter: 2018Q4

REPORT INFORMATION
  Report Type: Spontaneous
  Country: MK (occurrence: MK)
  Receive Date: 20181123
  Receipt Date: 20181123
  Transmission Date: 20190205
  Serious: Yes (Other)
  Sender: FDA-Public Use
  Company Number: MK-ROCHE-2216828

PATIENT
  Sex: Male

DRUGS (3)
  1. BLOOD [Concomitant]
     Active Substance: WHOLE BLOOD
  2. ZELBORAF [Suspect]
     Active Substance: VEMURAFENIB
     Indication: MALIGNANT MELANOMA STAGE III
     Route: 065
  3. PLASMA [Concomitant]
     Active Substance: HUMAN PLASMA

REACTIONS (2)
  - Wrong product administered [Unknown]
  - Melanoma recurrent [Unknown]
